FAERS Safety Report 9866174 (Version 2)
Quarter: 2014Q1

REPORT INFORMATION
  Report Type: Spontaneous
  Country: US (occurrence: US)
  Receive Date: 20140203
  Receipt Date: 20140203
  Transmission Date: 20141002
  Serious: No
  Sender: FDA-Public Use
  Company Number: US-ALLERGAN-1317284US

PATIENT
  Age: 69 Year
  Sex: Female

DRUGS (12)
  1. RESTASIS [Suspect]
     Indication: DRY EYE
     Dosage: 2 GTT, BID
     Route: 047
  2. RESTASIS [Suspect]
     Indication: LACRIMATION INCREASED
  3. CLONAZEPAM [Concomitant]
     Indication: ANXIETY
     Dosage: 0.5 MG, UNK
     Route: 048
  4. CITALOPRAM [Concomitant]
     Indication: ANXIETY
     Dosage: 40 MG, QD
     Route: 048
  5. FLUTICASONE [Concomitant]
     Indication: HYPERSENSITIVITY
     Dosage: UNK UNK, BID
  6. MONTELUKAST [Concomitant]
     Indication: HYPERSENSITIVITY
     Dosage: 10 MG, UNK
     Route: 048
  7. LOSARTAN [Concomitant]
     Indication: BLOOD PRESSURE
     Dosage: 50 MG, QD
     Route: 048
  8. HYDROCHLOROTHIAZIDE [Concomitant]
     Indication: BLOOD PRESSURE
     Dosage: UNK
  9. NAPROXEN [Concomitant]
     Indication: ARTHRITIS
     Dosage: UNK
  10. WALGREEN^S ARTIFICIAL TEARS NOS [Concomitant]
     Indication: DRY EYE
     Dosage: UNK
  11. ALAVERT [Concomitant]
     Indication: HYPERSENSITIVITY
     Dosage: UNK
  12. MUCINEX [Concomitant]
     Indication: HYPERSENSITIVITY
     Dosage: UNK

REACTIONS (6)
  - Influenza [Unknown]
  - Abnormal sensation in eye [Unknown]
  - Swelling face [Unknown]
  - Vision blurred [Recovering/Resolving]
  - Lacrimation increased [Recovering/Resolving]
  - Eye discharge [Recovering/Resolving]
